FAERS Safety Report 25372439 (Version 3)
Quarter: 2025Q3

REPORT INFORMATION
  Report Type: Report from Study
  Country: US (occurrence: US)
  Receive Date: 20250529
  Receipt Date: 20250929
  Transmission Date: 20251020
  Serious: Yes (Other)
  Sender: INSMED
  Company Number: US-INSMED, INC.-2024-04165-US

PATIENT
  Sex: Female

DRUGS (1)
  1. ARIKAYCE [Suspect]
     Active Substance: AMIKACIN
     Indication: Mycobacterium avium complex infection
     Dosage: 590 MILLIGRAM, QD
     Route: 055
     Dates: start: 202410, end: 20241114

REACTIONS (12)
  - Hypoaesthesia oral [Unknown]
  - Throat clearing [Not Recovered/Not Resolved]
  - Hypertension [Not Recovered/Not Resolved]
  - Oropharyngeal discomfort [Unknown]
  - Cough [Recovered/Resolved]
  - Throat irritation [Not Recovered/Not Resolved]
  - Productive cough [Unknown]
  - Hypersensitivity [Unknown]
  - Headache [Recovered/Resolved]
  - Dysphonia [Not Recovered/Not Resolved]
  - Device leakage [Unknown]
  - Accidental underdose [Unknown]

NARRATIVE: CASE EVENT DATE: 20240101
